FAERS Safety Report 5912909-8 (Version None)
Quarter: 2008Q4

REPORT INFORMATION
  Report Type: 
  Country: None (occurrence: None)
  Receive Date: 20081006
  Receipt Date: 20080307
  Transmission Date: 20090506
  Serious: No
  Sender: FDA-Public Use
  Company Number: WAES 0802USA05780

PATIENT
  Age: 54 Year
  Sex: Male
  Weight: 92.9874 kg

DRUGS (8)
  1. JANUVIA [Suspect]
     Indication: BLOOD GLUCOSE
     Dosage: 50 MG/DAILY/PO
     Route: 048
     Dates: start: 20080122, end: 20080217
  2. ALLEGRA [Concomitant]
  3. ALTACE [Concomitant]
  4. GLUCOTROL [Concomitant]
  5. NIASPAN [Concomitant]
  6. TRICOR [Concomitant]
  7. ATENOLOL [Concomitant]
  8. METFORMIN [Concomitant]

REACTIONS (3)
  - HYPOGLYCAEMIA [None]
  - PRURITUS [None]
  - RASH [None]
